FAERS Safety Report 10477814 (Version 1)
Quarter: 2014Q3

REPORT INFORMATION
  Report Type: Spontaneous
  Country: IT (occurrence: IT)
  Receive Date: 20140926
  Receipt Date: 20140926
  Transmission Date: 20150326
  Serious: Yes (Death)
  Sender: FDA-Public Use
  Company Number: PHHY2014IT121717

PATIENT
  Sex: Female

DRUGS (4)
  1. QUETIAPINE [Suspect]
     Active Substance: QUETIAPINE
     Indication: DEPRESSION
     Route: 048
     Dates: start: 20131201, end: 20140131
  2. DELORAZEPAM [Concomitant]
     Active Substance: DELORAZEPAM
     Indication: DEPRESSION
  3. FLURAZEPAM [Concomitant]
     Active Substance: FLURAZEPAM\FLURAZEPAM HYDROCHLORIDE
     Indication: DEPRESSION
  4. REMERON [Suspect]
     Active Substance: MIRTAZAPINE
     Indication: DEPRESSION
     Route: 048
     Dates: start: 20131201, end: 20140131

REACTIONS (4)
  - Haemolytic anaemia [Fatal]
  - Death [Fatal]
  - Hypotension [Fatal]
  - Dyspnoea [Fatal]

NARRATIVE: CASE EVENT DATE: 20140130
